FAERS Safety Report 7750784-X (Version None)
Quarter: 2011Q3

REPORT INFORMATION
  Report Type: 
  Country: None (occurrence: None)
  Receive Date: 20110914
  Receipt Date: 20110906
  Transmission Date: 20111222
  Serious: Yes (Hospitalization, Other)
  Sender: FDA-Public Use
  Company Number: US-ASTRAZENECA-2011SE36199

PATIENT
  Age: 53 Year
  Sex: Female

DRUGS (10)
  1. AVINZA [Concomitant]
     Indication: PAIN
  2. LEVOTHYROXINE SODIUM [Concomitant]
     Indication: THYROID DISORDER
  3. LASIX [Concomitant]
     Indication: OEDEMA
  4. POTASSIUM [Concomitant]
  5. SIMVASTATIN [Concomitant]
     Indication: BLOOD CHOLESTEROL ABNORMAL
  6. NEXIUM [Suspect]
     Route: 048
  7. LORTAB [Concomitant]
     Indication: PAIN
  8. NEXIUM [Suspect]
     Route: 048
  9. METFORMIN HCL [Concomitant]
     Indication: DIABETES MELLITUS
  10. LOVAZA [Concomitant]
     Indication: BLOOD TRIGLYCERIDES ABNORMAL

REACTIONS (9)
  - UPPER LIMB FRACTURE [None]
  - DISABILITY [None]
  - BARRETT'S OESOPHAGUS [None]
  - ROAD TRAFFIC ACCIDENT [None]
  - DYSPHONIA [None]
  - AMNESIA [None]
  - INAPPROPRIATE SCHEDULE OF DRUG ADMINISTRATION [None]
  - CARDIAC ASSISTANCE DEVICE USER [None]
  - SPINAL FRACTURE [None]
